FAERS Safety Report 11890985 (Version 1)
Quarter: 2016Q1

REPORT INFORMATION
  Report Type: Spontaneous
  Country: US (occurrence: US)
  Receive Date: 20160106
  Receipt Date: 20160106
  Transmission Date: 20160526
  Serious: No
  Sender: FDA-Public Use
  Company Number: US-BIOGEN-2015BI155990

PATIENT
  Sex: Female

DRUGS (1)
  1. TECFIDERA [Suspect]
     Active Substance: DIMETHYL FUMARATE
     Indication: RELAPSING-REMITTING MULTIPLE SCLEROSIS
     Route: 065
     Dates: start: 201502, end: 201509

REACTIONS (5)
  - Asthenia [Unknown]
  - Hypersensitivity [Unknown]
  - Urinary incontinence [Unknown]
  - Weight increased [Unknown]
  - Pain [Unknown]
